FAERS Safety Report 5161249-6 (Version None)
Quarter: 2006Q4

REPORT INFORMATION
  Report Type: 
  Country: None (occurrence: None)
  Receive Date: 20061130
  Receipt Date: 20060908
  Transmission Date: 20070319
  Serious: No
  Sender: FDA-Public Use
  Company Number: US-BRISTOL-MYERS SQUIBB COMPANY-13503412

PATIENT
  Age: 48 Year
  Sex: Male
  Weight: 91 kg

DRUGS (8)
  1. ERBITUX [Suspect]
     Indication: NEOPLASM MALIGNANT
     Route: 042
     Dates: start: 20060418, end: 20060606
  2. RADIATION THERAPY [Concomitant]
  3. OXYCODONE HCL [Concomitant]
  4. IBUPROFEN [Concomitant]
  5. ZOFRAN [Concomitant]
  6. REGLAN [Concomitant]
  7. BENADRYL [Concomitant]
     Indication: PREMEDICATION
  8. TYLENOL [Concomitant]

REACTIONS (7)
  - ABDOMINAL DISCOMFORT [None]
  - COLITIS [None]
  - CONSTIPATION [None]
  - DIARRHOEA [None]
  - FATIGUE [None]
  - HEADACHE [None]
  - RASH [None]
